FAERS Safety Report 23737257 (Version 1)
Quarter: 2024Q2

REPORT INFORMATION
  Report Type: Spontaneous
  Country: US (occurrence: None)
  Receive Date: 20240412
  Receipt Date: 20240412
  Transmission Date: 20240715
  Serious: Yes (Hospitalization)
  Sender: FDA-Public Use
  Company Number: None

PATIENT
  Age: 74 Year
  Sex: Male
  Weight: 71.2 kg

DRUGS (1)
  1. CYTARABINE\DAUNORUBICIN [Suspect]
     Active Substance: CYTARABINE\DAUNORUBICIN
     Dates: end: 20230815

REACTIONS (13)
  - Fall [None]
  - Haemorrhage [None]
  - Craniofacial fracture [None]
  - Skull fracture [None]
  - Craniofacial fracture [None]
  - Craniofacial fracture [None]
  - Craniofacial fracture [None]
  - Skin laceration [None]
  - Skin laceration [None]
  - Subarachnoid haemorrhage [None]
  - Haematemesis [None]
  - Hypotension [None]
  - Febrile neutropenia [None]

NARRATIVE: CASE EVENT DATE: 20230826
